FAERS Safety Report 7004687-9 (Version None)
Quarter: 2010Q3

REPORT INFORMATION
  Report Type: 
  Country: None (occurrence: None)
  Receive Date: 20100921
  Receipt Date: 20100914
  Transmission Date: 20110219
  Serious: Yes (Hospitalization, Other)
  Sender: FDA-Public Use
  Company Number: US-ASTRAZENECA-2007UW23893

PATIENT
  Age: 13919 Day
  Sex: Male
  Weight: 108.9 kg

DRUGS (53)
  1. SEROQUEL [Suspect]
     Indication: ANXIETY
     Dosage: 300 MG, 900 MG TO 1200 MG
     Route: 048
     Dates: start: 19980101, end: 20050701
  2. SEROQUEL [Suspect]
     Indication: AFFECTIVE DISORDER
     Dosage: 300 MG, 900 MG TO 1200 MG
     Route: 048
     Dates: start: 19980101, end: 20050701
  3. SEROQUEL [Suspect]
     Indication: SLEEP DISORDER
     Dosage: 300 MG, 900 MG TO 1200 MG
     Route: 048
     Dates: start: 19980101, end: 20050701
  4. SEROQUEL [Suspect]
     Indication: DISTURBANCE IN ATTENTION
     Dosage: 300 MG, 900 MG TO 1200 MG
     Route: 048
     Dates: start: 19980101, end: 20050701
  5. SEROQUEL [Suspect]
     Dosage: 400-1200 MG
     Route: 048
     Dates: start: 20000526
  6. SEROQUEL [Suspect]
     Dosage: 400-1200 MG
     Route: 048
     Dates: start: 20000526
  7. SEROQUEL [Suspect]
     Dosage: 400-1200 MG
     Route: 048
     Dates: start: 20000526
  8. SEROQUEL [Suspect]
     Dosage: 400-1200 MG
     Route: 048
     Dates: start: 20000526
  9. SEROQUEL [Suspect]
     Dosage: 100-600 MG
     Route: 048
     Dates: start: 20031030, end: 20050214
  10. SEROQUEL [Suspect]
     Dosage: 100-600 MG
     Route: 048
     Dates: start: 20031030, end: 20050214
  11. SEROQUEL [Suspect]
     Dosage: 100-600 MG
     Route: 048
     Dates: start: 20031030, end: 20050214
  12. SEROQUEL [Suspect]
     Dosage: 100-600 MG
     Route: 048
     Dates: start: 20031030, end: 20050214
  13. SEROQUEL [Suspect]
     Route: 048
     Dates: start: 20040703, end: 20040704
  14. SEROQUEL [Suspect]
     Route: 048
     Dates: start: 20040703, end: 20040704
  15. SEROQUEL [Suspect]
     Route: 048
     Dates: start: 20040703, end: 20040704
  16. SEROQUEL [Suspect]
     Route: 048
     Dates: start: 20040703, end: 20040704
  17. SEROQUEL [Suspect]
     Dosage: 600-1200 MG
     Route: 048
     Dates: start: 20050423, end: 20050519
  18. SEROQUEL [Suspect]
     Dosage: 600-1200 MG
     Route: 048
     Dates: start: 20050423, end: 20050519
  19. SEROQUEL [Suspect]
     Dosage: 600-1200 MG
     Route: 048
     Dates: start: 20050423, end: 20050519
  20. SEROQUEL [Suspect]
     Dosage: 600-1200 MG
     Route: 048
     Dates: start: 20050423, end: 20050519
  21. SEROQUEL [Suspect]
     Route: 048
     Dates: start: 20050522, end: 20050531
  22. SEROQUEL [Suspect]
     Route: 048
     Dates: start: 20050522, end: 20050531
  23. SEROQUEL [Suspect]
     Route: 048
     Dates: start: 20050522, end: 20050531
  24. SEROQUEL [Suspect]
     Route: 048
     Dates: start: 20050522, end: 20050531
  25. RISPERDAL [Concomitant]
     Indication: ANXIETY
     Dates: start: 19990101, end: 20041001
  26. RISPERDAL [Concomitant]
     Dosage: 0.5-4 MG
     Dates: start: 20030428, end: 20031023
  27. ABILIFY [Concomitant]
     Dates: start: 20090101
  28. REMERON [Concomitant]
     Dosage: 15-30 MG
     Route: 048
     Dates: start: 20040117
  29. ELAVIL [Concomitant]
     Route: 048
     Dates: start: 20040522
  30. TRAZODONE HCL [Concomitant]
     Route: 048
     Dates: start: 20000526
  31. LIPITOR [Concomitant]
     Dosage: 10-40 MG
     Route: 048
     Dates: start: 20040117
  32. LABETALOL HCL [Concomitant]
     Indication: HYPERTENSION
     Route: 048
     Dates: start: 20050121
  33. ASPIRIN [Concomitant]
     Dosage: 325 MG DAILY, 81 MG CHEWABLE TABLET 1 QD
     Route: 048
     Dates: start: 20040117
  34. ZOCOR [Concomitant]
     Dosage: 20-40 MG
     Route: 048
     Dates: start: 20040117
  35. PLAVIX [Concomitant]
     Route: 048
     Dates: start: 20050709
  36. LISINOPRIL [Concomitant]
     Dosage: 10-20 MG
     Route: 048
     Dates: start: 20050709
  37. CARDIZEM CD [Concomitant]
     Dosage: 120-240 MG
     Route: 048
     Dates: start: 20050709
  38. METFORMIN [Concomitant]
     Route: 048
     Dates: start: 20050711
  39. XANAX [Concomitant]
     Indication: ANXIETY
     Dosage: 0.25-0.5 MG
     Route: 048
     Dates: start: 20050709
  40. PEPCID [Concomitant]
     Route: 048
     Dates: start: 20051116
  41. GLUCOTROL XL [Concomitant]
     Dosage: 5-10 MG
     Route: 048
     Dates: start: 20070409
  42. PROZAC [Concomitant]
     Indication: ANXIETY
     Route: 048
     Dates: start: 20000126
  43. PROZAC [Concomitant]
     Indication: DEPRESSION
     Route: 048
     Dates: start: 20000126
  44. NITROGLYCERIN [Concomitant]
     Indication: ANGINA PECTORIS
     Route: 060
     Dates: start: 20050705
  45. ALBUTEROL [Concomitant]
     Dosage: 2 INHALATIONS FOUR TIMES A DAY AS NEEDED
     Route: 055
     Dates: start: 20070409
  46. GABAPENTIN [Concomitant]
     Route: 048
     Dates: start: 20051116
  47. ATIVAN [Concomitant]
     Dates: start: 20000526
  48. HYDROXYZINE HCL [Concomitant]
     Indication: ANXIETY
     Route: 048
     Dates: start: 20051116
  49. FLEXERIL [Concomitant]
     Indication: MUSCLE SPASMS
     Route: 048
  50. GLYBURIDE [Concomitant]
     Dates: start: 20050711
  51. METOPROLOL [Concomitant]
     Dosage: 25 MG 1/2 BID
     Route: 048
     Dates: start: 20090715
  52. HALDOL [Concomitant]
  53. CELEXA [Concomitant]

REACTIONS (18)
  - ACUTE CORONARY SYNDROME [None]
  - ANGINA PECTORIS [None]
  - ARTERIOSCLEROSIS [None]
  - ARTERIOSCLEROSIS CORONARY ARTERY [None]
  - CHEST PAIN [None]
  - CORONARY ARTERY DISEASE [None]
  - DIABETES MELLITUS [None]
  - DIABETES MELLITUS INADEQUATE CONTROL [None]
  - DIABETIC KETOACIDOSIS [None]
  - DIABETIC NEPHROPATHY [None]
  - HYPERGLYCAEMIA [None]
  - HYPOGLYCAEMIA [None]
  - MYOCARDIAL INFARCTION [None]
  - NEUROPATHY PERIPHERAL [None]
  - PANCREATITIS [None]
  - SUICIDE ATTEMPT [None]
  - TYPE 1 DIABETES MELLITUS [None]
  - TYPE 2 DIABETES MELLITUS [None]
